FAERS Safety Report 21168019 (Version 1)
Quarter: 2022Q3

REPORT INFORMATION
  Report Type: Spontaneous
  Country: US (occurrence: US)
  Receive Date: 20220803
  Receipt Date: 20220803
  Transmission Date: 20221027
  Serious: No
  Sender: FDA-Public Use
  Company Number: US-JNJFOC-20160413167

PATIENT
  Age: 5 Year
  Sex: Male

DRUGS (3)
  1. RISPERDAL [Suspect]
     Active Substance: RISPERIDONE
     Indication: Attention deficit hyperactivity disorder
     Route: 048
     Dates: start: 20120927, end: 20130819
  2. RISPERDAL [Suspect]
     Active Substance: RISPERIDONE
     Indication: Disturbance in social behaviour
  3. RISPERIDONE [Suspect]
     Active Substance: RISPERIDONE
     Indication: Product used for unknown indication
     Route: 065
     Dates: start: 20130812, end: 20130912

REACTIONS (1)
  - Breast swelling [Unknown]

NARRATIVE: CASE EVENT DATE: 20140612
